FAERS Safety Report 10166687 (Version 3)
Quarter: 2015Q1

REPORT INFORMATION
  Report Type: Spontaneous
  Country: SE (occurrence: SE)
  Receive Date: 20140512
  Receipt Date: 20150115
  Transmission Date: 20150720
  Serious: Yes (Disabling)
  Sender: FDA-Public Use
  Company Number: SE-SA-2014SA056490

PATIENT
  Age: 68 Year
  Sex: Male

DRUGS (1)
  1. PLAVIX [Suspect]
     Active Substance: CLOPIDOGREL BISULFATE
     Indication: ACUTE MYOCARDIAL INFARCTION
     Route: 065
     Dates: end: 20120814

REACTIONS (4)
  - Dental caries [Recovered/Resolved with Sequelae]
  - Teeth brittle [Recovered/Resolved with Sequelae]
  - Dry mouth [Recovered/Resolved with Sequelae]
  - Tooth loss [Recovered/Resolved with Sequelae]

NARRATIVE: CASE EVENT DATE: 20110915
